FAERS Safety Report 8459076-7 (Version None)
Quarter: 2012Q2

REPORT INFORMATION
  Report Type: 
  Country: None (occurrence: None)
  Receive Date: 20120622
  Receipt Date: 20120614
  Transmission Date: 20120825
  Serious: Yes (Life-Threatening, Hospitalization)
  Sender: FDA-Public Use
  Company Number: US-ROCHE-1078564

PATIENT
  Age: 77 Year
  Sex: Female
  Weight: 96.4 kg

DRUGS (3)
  1. CARBOPLATIN [Suspect]
     Indication: OVARIAN CANCER
     Dosage: LAST DOS EPRIOR TO SAE 5 APR 2012
     Route: 042
     Dates: start: 20120201
  2. AVASTIN [Suspect]
     Indication: OVARIAN CANCER
     Dosage: LAST DOS EPRIOR TO SAE 22 FEB  2012
     Dates: start: 20120201
  3. PACLITAXEL [Suspect]
     Indication: OVARIAN CANCER
     Dosage: LAST DOS EPRIOR TO SAE 5 APR 2012
     Route: 042
     Dates: start: 20120201

REACTIONS (8)
  - FALL [None]
  - WHITE BLOOD CELL COUNT DECREASED [None]
  - HIP FRACTURE [None]
  - DYSPNOEA [None]
  - PLATELET COUNT DECREASED [None]
  - FATIGUE [None]
  - NEUTROPHIL COUNT DECREASED [None]
  - ANAEMIA [None]
